FAERS Safety Report 25438081 (Version 1)
Quarter: 2025Q2

REPORT INFORMATION
  Report Type: Spontaneous
  Country: JP (occurrence: JP)
  Receive Date: 20250616
  Receipt Date: 20250616
  Transmission Date: 20250717
  Serious: Yes (Death, Other)
  Sender: Teyro Labs
  Company Number: JP-TEYRO-2025-TY-000399

PATIENT
  Age: 8 Decade
  Sex: Male

DRUGS (2)
  1. GEMCITABINE [Suspect]
     Active Substance: GEMCITABINE
     Indication: Pancreatic carcinoma
     Route: 065
  2. PACLITAXEL [Suspect]
     Active Substance: PACLITAXEL
     Indication: Pancreatic carcinoma
     Route: 065

REACTIONS (4)
  - Pancreatic abscess [Fatal]
  - Gastric infection [Fatal]
  - Cellulitis [Fatal]
  - Drug ineffective [Fatal]
